FAERS Safety Report 23768127 (Version 2)
Quarter: 2024Q3

REPORT INFORMATION
  Report Type: Spontaneous
  Country: FR (occurrence: FR)
  Receive Date: 20240422
  Receipt Date: 20240903
  Transmission Date: 20241016
  Serious: Yes (Death, Other)
  Sender: ACCORD
  Company Number: FR-ROCHE-3515673

PATIENT
  Age: 64 Year
  Sex: Male

DRUGS (17)
  1. ETOPOSIDE [Suspect]
     Active Substance: ETOPOSIDE
     Indication: Lymphoma
  2. GEMCITABINE HYDROCHLORIDE [Suspect]
     Active Substance: GEMCITABINE HYDROCHLORIDE
     Indication: Lymphoma
  3. OXALIPLATIN [Suspect]
     Active Substance: OXALIPLATIN
     Indication: Lymphoma
  4. DOXORUBICIN [Suspect]
     Active Substance: DOXORUBICIN
     Indication: Lymphoma
  5. TACROLIMUS [Suspect]
     Active Substance: TACROLIMUS
     Indication: Lymphoma
  6. CYCLOPHOSPHAMIDE [Suspect]
     Active Substance: CYCLOPHOSPHAMIDE
     Indication: Lymphoma
  7. EVEROLIMUS [Suspect]
     Active Substance: EVEROLIMUS
     Indication: Lymphoma
  8. FAVIPIRAVIR [Suspect]
     Active Substance: FAVIPIRAVIR
     Indication: Norovirus infection
     Dosage: D14 TO 23
  9. IFOSFAMIDE [Suspect]
     Active Substance: IFOSFAMIDE
     Indication: Lymphoma
  10. METRONIDAZOLE [Suspect]
     Active Substance: METRONIDAZOLE
     Indication: Parasitic gastroenteritis
  11. NITAZOXANIDE [Suspect]
     Active Substance: NITAZOXANIDE
     Indication: Norovirus infection
  12. RITUXIMAB [Suspect]
     Active Substance: RITUXIMAB
     Indication: Lymphoma
  13. PREDNISOLONE [Suspect]
     Active Substance: PREDNISOLONE
     Indication: Lymphoma
  14. VINCRISTINE [Suspect]
     Active Substance: VINCRISTINE
     Indication: Lymphoma
  15. FAVIPIRAVIR [Suspect]
     Active Substance: FAVIPIRAVIR
     Indication: Norovirus infection
     Dosage: D24 TO 32
  16. FAVIPIRAVIR [Suspect]
     Active Substance: FAVIPIRAVIR
     Indication: Norovirus infection
     Dosage: D1 TO 13
  17. FAVIPIRAVIR [Suspect]
     Active Substance: FAVIPIRAVIR
     Indication: Norovirus infection
     Dosage: AT DAY 33

REACTIONS (5)
  - Sepsis [Unknown]
  - Disease progression [Fatal]
  - Norovirus infection [Not Recovered/Not Resolved]
  - Parasitic gastroenteritis [Recovered/Resolved]
  - Bacterial infection [Fatal]
